FAERS Safety Report 4658315-8 (Version None)
Quarter: 2005Q2

REPORT INFORMATION
  Report Type: 
  Country: None (occurrence: None)
  Receive Date: 20050510
  Receipt Date: 20050510
  Transmission Date: 20051028
  Serious: Yes (Hospitalization)
  Sender: FDA-Public Use
  Company Number: None

PATIENT
  Age: 58 Year
  Sex: Female
  Weight: 72 kg

DRUGS (12)
  1. TAXOTERE [Suspect]
     Indication: BREAST CANCER STAGE IV
     Dosage: 59MG   WEEKLY    INTRAVENOU
     Route: 042
     Dates: start: 20050401, end: 20050429
  2. REFLUDAN [Suspect]
     Dosage: 0.56 ML   Q 12 HOURS   SUBCUTANEO
     Route: 058
     Dates: start: 20050402, end: 20050504
  3. TRAZODONE [Concomitant]
  4. PROPRANOLOL [Concomitant]
  5. TRIAVIL [Concomitant]
  6. PROTONOX [Concomitant]
  7. XANAX [Concomitant]
  8. HYDOCODONE/APAP [Concomitant]
  9. ZOFRAN AND COMPAZINR [Concomitant]
  10. ACYCLOVIR [Concomitant]
  11. LEXAPRO [Concomitant]
  12. ANTIVERT [Concomitant]

REACTIONS (2)
  - PLEURITIC PAIN [None]
  - UPPER RESPIRATORY TRACT INFECTION [None]
